FAERS Safety Report 18316755 (Version 1)
Quarter: 2020Q3

REPORT INFORMATION
  Report Type: Other
  Country: CN (occurrence: CN)
  Receive Date: 20200928
  Receipt Date: 20200928
  Transmission Date: 20201103
  Serious: Yes (Life-Threatening)
  Sender: FDA-Public Use
  Company Number: CN-JIANGSU HENGRUI MEDICINE CO., LTD.-2092199

PATIENT
  Age: 13 Year
  Sex: Male
  Weight: 45 kg

DRUGS (3)
  1. CISATRACURIUM BESYLATE INJECTION USP, 10 MG/5 ML (2 MG/ML) AND 200 MG/ [Suspect]
     Active Substance: CISATRACURIUM BESYLATE
     Indication: ANAESTHESIA
     Route: 041
     Dates: start: 20200916, end: 20200916
  2. SUFENTANIL CITRATE INJECTION [Concomitant]
     Active Substance: SUFENTANIL CITRATE
     Route: 041
     Dates: start: 20200916, end: 20200916
  3. SEVOFLURANE FOR INHALATION [Suspect]
     Active Substance: SEVOFLURANE
     Route: 055
     Dates: start: 20200916, end: 20200916

REACTIONS (3)
  - Palpitations [Recovered/Resolved]
  - Tachypnoea [Recovered/Resolved]
  - Cough [Recovered/Resolved]

NARRATIVE: CASE EVENT DATE: 20200916
